FAERS Safety Report 9685114 (Version 2)
Quarter: 2014Q1

REPORT INFORMATION
  Report Type: Spontaneous
  Country: US (occurrence: US)
  Receive Date: 20131113
  Receipt Date: 20140207
  Transmission Date: 20141002
  Serious: Yes (Other)
  Sender: FDA-Public Use
  Company Number: US-AMGEN-USASP2013079308

PATIENT
  Age: 31 Year
  Sex: Female
  Weight: 73.47 kg

DRUGS (3)
  1. ENBREL [Suspect]
     Indication: RHEUMATOID ARTHRITIS
     Dosage: 25 MG, TWICE WEEKLY
     Route: 058
     Dates: start: 200110
  2. PRENATAL                           /00231801/ [Concomitant]
     Dosage: UNK
  3. FOLIC ACID [Concomitant]
     Dosage: 1 MG, QD (PILL)

REACTIONS (1)
  - Caesarean section [Recovered/Resolved]
